FAERS Safety Report 5644262-1 (Version None)
Quarter: 2008Q1

REPORT INFORMATION
  Report Type: 
  Country: None (occurrence: None)
  Receive Date: 20080227
  Receipt Date: 20080220
  Transmission Date: 20080703
  Serious: Yes (Hospitalization, Disabling, Other)
  Sender: FDA-Public Use
  Company Number: 2007AP000664

PATIENT
  Age: 23 Year
  Sex: Male

DRUGS (6)
  1. CIPROFLOXACIN [Suspect]
     Indication: PHARYNGITIS
     Dosage: 500 MG;BID;PO
     Route: 048
     Dates: start: 20070501, end: 20070517
  2. CHERATUSSIN COUGH SYRUP [Concomitant]
  3. METHYLPREDNISOLONE HYDROXYZINE [Concomitant]
  4. BUPROPION HYDROCHLORIDE [Concomitant]
  5. CITALOPRAM [Concomitant]
  6. HYDROXYZINE [Concomitant]

REACTIONS (7)
  - AMNESIA [None]
  - BLISTER [None]
  - DEPRESSION [None]
  - EXCORIATION [None]
  - RASH PAPULAR [None]
  - SKIN EXFOLIATION [None]
  - VARICELLA [None]
